FAERS Safety Report 5101884-4 (Version None)
Quarter: 2006Q3

REPORT INFORMATION
  Report Type: 
  Country: None (occurrence: None)
  Receive Date: 20060907
  Receipt Date: 20060817
  Transmission Date: 20061208
  Serious: Yes (Other)
  Sender: FDA-Public Use
  Company Number: US200608003870

PATIENT
  Age: 84 Year
  Sex: Female

DRUGS (12)
  1. FORTEO [Suspect]
     Indication: OSTEOPOROSIS
     Dates: start: 20050101, end: 20060601
  2. FORTEO [Concomitant]
  3. OXYGEN (OXYGEN) [Concomitant]
  4. CARDURA [Concomitant]
  5. CARDIZEM [Concomitant]
  6. REMERON [Concomitant]
  7. FLONASE (FLUTICASONE PROPIONATE) NASAL DROP (NASAL SPRAY TOO) [Concomitant]
  8. SPIRIVA [Concomitant]
  9. ADVAIR  (FLUTICASONE PROPIONATE, SALMETEROL XINAFOATE) NASAL DROP (NAS [Concomitant]
  10. CLONAZEPAM [Concomitant]
  11. DEPAKOTE [Concomitant]
  12. NEXIUM [Concomitant]

REACTIONS (5)
  - CEREBROVASCULAR ACCIDENT [None]
  - DYSARTHRIA [None]
  - PHARMACEUTICAL PRODUCT COMPLAINT [None]
  - TENSION HEADACHE [None]
  - TRANSIENT ISCHAEMIC ATTACK [None]
